FAERS Safety Report 9976069 (Version 1)
Quarter: 2014Q1

REPORT INFORMATION
  Report Type: Spontaneous
  Country: US (occurrence: US)
  Receive Date: 20140306
  Receipt Date: 20140306
  Transmission Date: 20141002
  Serious: Yes (Life-Threatening, Hospitalization, Other)
  Sender: FDA-Public Use
  Company Number: US-RB-064074-14

PATIENT
  Age: 9 Month
  Sex: Male

DRUGS (1)
  1. SUBOXONE UNSPECIFIED [Suspect]
     Indication: ACCIDENTAL EXPOSURE TO PRODUCT BY CHILD
     Dosage: DOSING DETAILS UNKNOWN
     Route: 065
     Dates: start: 201402, end: 201402

REACTIONS (4)
  - Accidental exposure to product by child [Recovered/Resolved]
  - Unresponsive to stimuli [Not Recovered/Not Resolved]
  - Brain oedema [Not Recovered/Not Resolved]
  - Contusion [Not Recovered/Not Resolved]
